FAERS Safety Report 9432143 (Version 3)
Quarter: 2013Q3

REPORT INFORMATION
  Report Type: Spontaneous
  Country: US (occurrence: US)
  Receive Date: 20130731
  Receipt Date: 20130923
  Transmission Date: 20140515
  Serious: No
  Sender: FDA-Public Use
  Company Number: US-PFIZER INC-2013219335

PATIENT
  Age: 4 Year
  Sex: Female

DRUGS (1)
  1. PHOSPHOLINE IODIDE [Suspect]
     Indication: STRABISMUS
     Dosage: 1 GTT (1 DROP BOTH EYES), 1X/DAY
     Route: 047
     Dates: start: 20100521, end: 20130808

REACTIONS (4)
  - Drug ineffective [Unknown]
  - Vision blurred [Unknown]
  - Eye disorder [Recovered/Resolved]
  - Product quality issue [Unknown]
